FAERS Safety Report 6617837-0 (Version None)
Quarter: 2010Q1

REPORT INFORMATION
  Report Type: 
  Country: None (occurrence: None)
  Receive Date: 20100308
  Receipt Date: 20100303
  Transmission Date: 20100710
  Serious: Yes (Other)
  Sender: FDA-Public Use
  Company Number: CN-ASTRAZENECA-2010SE09288

PATIENT
  Age: 66 Year
  Sex: Female

DRUGS (6)
  1. GEFITINIB [Suspect]
     Indication: LUNG ADENOCARCINOMA
     Route: 048
     Dates: start: 20080606, end: 20080619
  2. GEFITINIB [Suspect]
     Route: 048
     Dates: start: 20080815
  3. RADIOTHERAPY [Concomitant]
     Indication: METASTASES TO CENTRAL NERVOUS SYSTEM
     Dosage: 30 GY WITH 6MV PHOTONS  0.3 GY 5 DAYS/WEEK
  4. MANNITOL [Concomitant]
     Route: 042
  5. DEXAMETHASONE [Concomitant]
  6. NUTRITION SUPPORT [Concomitant]

REACTIONS (1)
  - DISSEMINATED INTRAVASCULAR COAGULATION [None]
